FAERS Safety Report 24166424 (Version 1)
Quarter: 2024Q3

REPORT INFORMATION
  Report Type: Report from Study
  Country: US (occurrence: US)
  Receive Date: 20240802
  Receipt Date: 20240802
  Transmission Date: 20241017
  Serious: Yes (Other)
  Sender: ROCHE
  Company Number: US-ROCHE-10000041941

PATIENT

DRUGS (1)
  1. XOLAIR [Suspect]
     Active Substance: OMALIZUMAB
     Indication: Product used for unknown indication
     Route: 065

REACTIONS (7)
  - Flushing [Unknown]
  - Paraesthesia [Unknown]
  - Nausea [Unknown]
  - Palpitations [Unknown]
  - Pyrexia [Unknown]
  - Anaphylactic reaction [Unknown]
  - Bone pain [Unknown]
